FAERS Safety Report 10236453 (Version 1)
Quarter: 2014Q2

REPORT INFORMATION
  Report Type: Spontaneous
  Country: US (occurrence: None)
  Receive Date: 20140612
  Receipt Date: 20140612
  Transmission Date: 20141212
  Serious: No
  Sender: FDA-Public Use
  Company Number: None

PATIENT
  Age: 61 Year
  Sex: Female
  Weight: 65.77 kg

DRUGS (1)
  1. HYDROXYCHLOR 200MG HYDROXYCHLOROQUINE [Suspect]
     Indication: RHEUMATOID ARTHRITIS
     Dosage: 200MG 1X A DAY

REACTIONS (5)
  - Abdominal discomfort [None]
  - Product substitution issue [None]
  - Therapeutic response changed [None]
  - Drug intolerance [None]
  - Drug ineffective [None]
